FAERS Safety Report 10645869 (Version 1)
Quarter: 2014Q4

REPORT INFORMATION
  Report Type: Spontaneous
  Country: US (occurrence: None)
  Receive Date: 20141202
  Receipt Date: 20141202
  Transmission Date: 20150529
  Serious: No
  Sender: FDA-Public Use
  Company Number: 2014TUS002161

PATIENT
  Age: 69 Year
  Sex: Female

DRUGS (5)
  1. LOTREL (AMLODIPINE BESILATE, BENAZEPRIL HYDROCHLORIDE) [Concomitant]
  2. ZIAC (BISOPROLOL FUMARATE, HYDROCHLOROTHIAZIDE) [Concomitant]
  3. OSENI [Suspect]
     Active Substance: ALOGLIPTIN BENZOATE\PIOGLITAZONE HYDROCHLORIDE
     Indication: TYPE 2 DIABETES MELLITUS
     Route: 048
     Dates: start: 20131107
  4. AMARYL [Concomitant]
     Active Substance: GLIMEPIRIDE
  5. ADVAIR DISKUS [Concomitant]
     Active Substance: FLUTICASONE PROPIONATE\SALMETEROL XINAFOATE

REACTIONS (1)
  - Oedema [None]
